FAERS Safety Report 14965996 (Version 1)
Quarter: 2018Q2

REPORT INFORMATION
  Report Type: Spontaneous
  Country: US (occurrence: US)
  Receive Date: 20180603
  Receipt Date: 20180603
  Transmission Date: 20180711
  Serious: No
  Sender: FDA-Public Use
  Company Number: US-JNJFOC-20180438303

PATIENT
  Sex: Female
  Weight: 52.16 kg

DRUGS (4)
  1. WOMENS ROGAINE [Suspect]
     Active Substance: MINOXIDIL
     Indication: ALOPECIA
     Route: 065
  2. WOMENS ROGAINE [Suspect]
     Active Substance: MINOXIDIL
     Indication: SKIN DISORDER
     Route: 065
  3. WOMENS ROGAINE UNSCENTED [Suspect]
     Active Substance: MINOXIDIL
     Indication: ALOPECIA
     Dosage: 1/2 CAPFUL PER DAY
     Route: 065
  4. WOMENS ROGAINE UNSCENTED [Suspect]
     Active Substance: MINOXIDIL
     Indication: SKIN DISORDER
     Dosage: 1/2 CAPFUL PER DAY
     Route: 065

REACTIONS (1)
  - Overdose [Unknown]
